FAERS Safety Report 11876453 (Version 1)
Quarter: 2015Q4

REPORT INFORMATION
  Report Type: Other
  Country: US (occurrence: US)
  Receive Date: 20151229
  Receipt Date: 20151229
  Transmission Date: 20160305
  Serious: Yes (Other)
  Sender: FDA-Public Use
  Company Number: US-SHIRE-US201516646

PATIENT
  Age: 38 Year
  Sex: Female

DRUGS (2)
  1. CINRYZE [Suspect]
     Active Substance: HUMAN C1-ESTERASE INHIBITOR
     Indication: HEREDITARY ANGIOEDEMA
     Dosage: 1000 UNITS, UNKNOWN
     Route: 042
     Dates: start: 201508, end: 201511
  2. CINRYZE [Suspect]
     Active Substance: HUMAN C1-ESTERASE INHIBITOR
     Indication: PROPHYLAXIS
     Dosage: 1500 UNITS, OTHER (EVERY 3-4 DAYS)
     Route: 042
     Dates: start: 201511

REACTIONS (10)
  - Fatigue [Unknown]
  - Abdominal pain [Unknown]
  - Vomiting [Unknown]
  - Pharyngeal oedema [Unknown]
  - Dizziness [Unknown]
  - Confusional state [Unknown]
  - Localised oedema [Unknown]
  - Nausea [Unknown]
  - Adverse drug reaction [Unknown]
  - Prescribed overdose [Not Recovered/Not Resolved]

NARRATIVE: CASE EVENT DATE: 2015
